FAERS Safety Report 4507335-2 (Version None)
Quarter: 2004Q4

REPORT INFORMATION
  Report Type: 
  Country: None (occurrence: None)
  Receive Date: 20041025
  Receipt Date: 20040817
  Transmission Date: 20050328
  Serious: Yes (Other)
  Sender: FDA-Public Use
  Company Number: US-JNJFOC-20040503980

PATIENT
  Age: 34 Year
  Sex: Female
  Weight: 78.0187 kg

DRUGS (6)
  1. REMICADE [Suspect]
     Indication: CROHN'S DISEASE
     Dosage: 400 MG, INTRAVENOUS
     Route: 042
     Dates: start: 20040218
  2. REMICADE [Suspect]
     Indication: CROHN'S DISEASE
     Dosage: 400 MG, INTRAVENOUS
     Route: 042
     Dates: start: 20040303
  3. REMICADE [Suspect]
     Indication: CROHN'S DISEASE
     Dosage: 400 MG, INTRAVENOUS
     Route: 042
     Dates: start: 20040331
  4. ASACOL [Concomitant]
  5. IMURAN [Concomitant]
  6. IMITREX [Concomitant]

REACTIONS (2)
  - INSOMNIA [None]
  - LOSS OF CONSCIOUSNESS [None]
